FAERS Safety Report 16398122 (Version 1)
Quarter: 2019Q2

REPORT INFORMATION
  Report Type: Spontaneous
  Country: US (occurrence: US)
  Receive Date: 20190606
  Receipt Date: 20190606
  Transmission Date: 20190711
  Serious: No
  Sender: FDA-Public Use
  Company Number: US-009507513-1905USA009748

PATIENT
  Sex: Female

DRUGS (1)
  1. MOMETASONE FUROATE. [Suspect]
     Active Substance: MOMETASONE FUROATE
     Dosage: UNK, TWICE A DAY FOR TWOO WEEKS
     Route: 055
     Dates: start: 201905

REACTIONS (2)
  - No adverse event [Unknown]
  - Product administration error [Unknown]

NARRATIVE: CASE EVENT DATE: 20190506
